FAERS Safety Report 12424647 (Version 1)
Quarter: 2016Q2

REPORT INFORMATION
  Report Type: Spontaneous
  Country: US (occurrence: US)
  Receive Date: 20160601
  Receipt Date: 20160601
  Transmission Date: 20160815
  Serious: No
  Sender: FDA-Public Use
  Company Number: US-PFIZER INC-2016260806

PATIENT
  Age: 70 Year
  Sex: Female

DRUGS (3)
  1. SUTENT [Suspect]
     Active Substance: SUNITINIB MALATE
     Dosage: 25 MG, CYCLIC (2 WEEKS ON/1 WEEK OFF)
     Dates: start: 20151001
  2. COZAAR [Concomitant]
     Active Substance: LOSARTAN POTASSIUM
     Dosage: UNK (1 10MG PILL TO 1 ? PILLS)
  3. SUTENT [Suspect]
     Active Substance: SUNITINIB MALATE
     Indication: GASTROINTESTINAL STROMAL TUMOUR
     Dosage: 37.5 MG, CYCLIC (28 DAYS ON / 14 DAYS OFF)
     Dates: start: 201510

REACTIONS (3)
  - Oral pain [Recovering/Resolving]
  - Skin exfoliation [Unknown]
  - Hypertension [Unknown]
